FAERS Safety Report 9050404 (Version 6)
Quarter: 2013Q4

REPORT INFORMATION
  Report Type: Spontaneous
  Country: US (occurrence: US)
  Receive Date: 20130205
  Receipt Date: 20131126
  Transmission Date: 20140711
  Serious: Yes (Hospitalization, Other)
  Sender: FDA-Public Use
  Company Number: US-PFIZER INC-2013041743

PATIENT
  Age: 59 Year
  Sex: Male
  Weight: 90.7 kg

DRUGS (14)
  1. VIAGRA [Suspect]
     Indication: ERECTILE DYSFUNCTION
     Dosage: 100 MG, AS NEEDED
     Route: 048
     Dates: start: 2009
  2. VIAGRA [Suspect]
     Dosage: 100 MG TABLET CUT IN HALF, AS NEEDED
     Route: 048
  3. VIAGRA [Suspect]
     Dosage: 100 MG, AS NEEDED
     Route: 048
     Dates: start: 20130815
  4. VIAGRA [Suspect]
     Dosage: UNK
     Route: 048
  5. CIALIS [Suspect]
     Indication: ERECTILE DYSFUNCTION
     Dosage: 100 MG, 2X/WEEK
     Dates: start: 2010, end: 201208
  6. KEPPRA [Concomitant]
     Indication: CONVULSION
     Dosage: UNK
  7. LISINOPRIL [Concomitant]
     Indication: HYPERTENSION
     Dosage: 20 MG, 1X/DAY
  8. LISINOPRIL [Concomitant]
     Dosage: 40 MG, 1X/DAY
  9. METFORMIN [Concomitant]
     Indication: DIABETES MELLITUS
     Dosage: 100 MG, 2X/DAY
  10. ONGLYZA [Concomitant]
     Indication: DIABETES MELLITUS
     Dosage: 5 MG, 1X/DAY
  11. ASPIRIN [Concomitant]
     Dosage: UNK
  12. VITAMIN B6 [Concomitant]
     Dosage: UNK
  13. MULTIVITAMINS, COMBINATIONS [Concomitant]
     Dosage: UNK
  14. CYANOCOBALAMIN [Concomitant]
     Dosage: 1000 UG, UNK

REACTIONS (9)
  - Hypertension [Unknown]
  - Gastrooesophageal reflux disease [Unknown]
  - Myalgia [Recovered/Resolved]
  - Arthralgia [Recovered/Resolved]
  - Headache [Recovered/Resolved]
  - Visual impairment [Unknown]
  - Anaemia [Unknown]
  - Drug ineffective [Recovered/Resolved]
  - Drug prescribing error [Recovered/Resolved]
